FAERS Safety Report 15869844 (Version 1)
Quarter: 2019Q1

REPORT INFORMATION
  Report Type: Spontaneous
  Country: CA (occurrence: CA)
  Receive Date: 20190125
  Receipt Date: 20190125
  Transmission Date: 20190417
  Serious: Yes (Death)
  Sender: FDA-Public Use
  Company Number: PHHY2019CA017161

PATIENT
  Age: 78 Year
  Sex: Female

DRUGS (2)
  1. LOVENOX [Concomitant]
     Active Substance: ENOXAPARIN SODIUM
     Indication: PRODUCT USED FOR UNKNOWN INDICATION
     Dosage: UNK
     Route: 065
  2. HEPARIN SODIUM. [Suspect]
     Active Substance: HEPARIN SODIUM
     Indication: SCAN MYOCARDIAL PERFUSION
     Dosage: 55290 U, TOTAL
     Route: 042

REACTIONS (7)
  - Heparin-induced thrombocytopenia test positive [Fatal]
  - Peripheral ischaemia [Fatal]
  - Pain in extremity [Fatal]
  - Transient ischaemic attack [Fatal]
  - Pulmonary embolism [Fatal]
  - Renal impairment [Fatal]
  - Deep vein thrombosis [Fatal]
